FAERS Safety Report 5714363-8 (Version None)
Quarter: 2008Q2

REPORT INFORMATION
  Report Type: 
  Country: None (occurrence: None)
  Receive Date: 20080423
  Receipt Date: 20080416
  Transmission Date: 20081010
  Serious: Yes (Other)
  Sender: FDA-Public Use
  Company Number: US-JNJFOC-20080404854

PATIENT
  Sex: Male

DRUGS (2)
  1. LEVAQUIN [Suspect]
     Route: 048
  2. LEVAQUIN [Suspect]
     Indication: PREMEDICATION
     Route: 048

REACTIONS (2)
  - DRUG INEFFECTIVE [None]
  - SEPSIS [None]
